FAERS Safety Report 4422417-1 (Version None)
Quarter: 2004Q3

REPORT INFORMATION
  Report Type: 
  Country: None (occurrence: None)
  Receive Date: 20040806
  Receipt Date: 20040715
  Transmission Date: 20050211
  Serious: Yes (Hospitalization, Disabling)
  Sender: FDA-Public Use
  Company Number: US_0407104312

PATIENT
  Age: 45 Year
  Sex: Female
  Weight: 43 kg

DRUGS (3)
  1. FORTEO [Suspect]
  2. PREDNISONE [Concomitant]
  3. ENBREL [Concomitant]

REACTIONS (2)
  - HYDRONEPHROSIS [None]
  - NEPHROLITHIASIS [None]
